FAERS Safety Report 9576468 (Version 1)
Quarter: 2013Q4

REPORT INFORMATION
  Report Type: Spontaneous
  Country: US (occurrence: US)
  Receive Date: 20131001
  Receipt Date: 20131001
  Transmission Date: 20140711
  Serious: No
  Sender: FDA-Public Use
  Company Number: US-AMGEN-USASP2013003384

PATIENT
  Age: 38 Year
  Sex: Female
  Weight: 115.65 kg

DRUGS (9)
  1. ENBREL [Suspect]
     Indication: PSORIATIC ARTHROPATHY
     Dosage: 50 MG, QWK
     Route: 058
  2. PREDNISONE [Concomitant]
     Dosage: 10 MG, UNK
  3. METHOTREXATE [Concomitant]
     Dosage: 2.5 MG, UNK
  4. CITALOPRAM [Concomitant]
     Dosage: 20 MG, UNK
  5. METFORMIN [Concomitant]
     Dosage: 1000 MG, UNK
  6. PROPRANOLOL [Concomitant]
     Dosage: 60 MG, UNK
  7. VITAMIN D                          /00107901/ [Concomitant]
     Dosage: 1000 UNIT, UNK
  8. ALEVE [Concomitant]
     Dosage: 220 MG, UNK
  9. FOLIC ACID [Concomitant]
     Dosage: 20 MG, UNK

REACTIONS (1)
  - Influenza [Unknown]
